FAERS Safety Report 17484377 (Version 1)
Quarter: 2020Q1

REPORT INFORMATION
  Report Type: Spontaneous
  Country: US (occurrence: US)
  Receive Date: 20200302
  Receipt Date: 20200302
  Transmission Date: 20200409
  Serious: Yes (Other)
  Sender: FDA-Public Use
  Company Number: US-ELI_LILLY_AND_COMPANY-US202002009917

PATIENT
  Age: 54 Year
  Sex: Female

DRUGS (9)
  1. HUMALOG [Suspect]
     Active Substance: INSULIN LISPRO
     Indication: PRODUCT USED FOR UNKNOWN INDICATION
     Dosage: UNK, UNKNOWN
     Route: 065
  2. TRESIBA [Concomitant]
     Active Substance: INSULIN DEGLUDEC
     Indication: PRODUCT USED FOR UNKNOWN INDICATION
     Dosage: 146 U, DAILY (BEDTIME)
  3. HUMALOG KWIKPEN [Suspect]
     Active Substance: INSULIN LISPRO
     Indication: PRODUCT USED FOR UNKNOWN INDICATION
     Dosage: 70 U, TID
     Route: 065
  4. OZEMPIC [Concomitant]
     Active Substance: SEMAGLUTIDE
     Indication: PRODUCT USED FOR UNKNOWN INDICATION
     Dosage: 1 MG, WEEKLY (1/W)
  5. HUMALOG KWIKPEN [Suspect]
     Active Substance: INSULIN LISPRO
     Indication: PRODUCT USED FOR UNKNOWN INDICATION
     Dosage: 70 U, TID
     Route: 065
  6. HUMALOG KWIKPEN [Suspect]
     Active Substance: INSULIN LISPRO
     Dosage: 70 U, TID
     Route: 065
  7. HUMALOG KWIKPEN [Suspect]
     Active Substance: INSULIN LISPRO
     Dosage: 70 U, TID
     Route: 065
  8. HUMALOG KWIKPEN [Suspect]
     Active Substance: INSULIN LISPRO
     Dosage: 70 U, TID
     Route: 065
  9. HUMALOG KWIKPEN [Suspect]
     Active Substance: INSULIN LISPRO
     Indication: PRODUCT USED FOR UNKNOWN INDICATION
     Dosage: 70 U, TID
     Route: 065

REACTIONS (12)
  - Insulin resistance [Not Recovered/Not Resolved]
  - Cataract [Not Recovered/Not Resolved]
  - Blood pressure increased [Unknown]
  - Accidental underdose [Not Recovered/Not Resolved]
  - Product dose omission [Not Recovered/Not Resolved]
  - Blood glucose decreased [Recovered/Resolved]
  - Blood glucose increased [Not Recovered/Not Resolved]
  - Blood glucose increased [Unknown]
  - Stress [Unknown]
  - Hypoglycaemic unconsciousness [Recovered/Resolved]
  - Anxiety [Not Recovered/Not Resolved]
  - Blood glucose decreased [Unknown]

NARRATIVE: CASE EVENT DATE: 201910
